FAERS Safety Report 22385541 (Version 3)
Quarter: 2024Q1

REPORT INFORMATION
  Report Type: Spontaneous
  Country: US (occurrence: US)
  Receive Date: 20230530
  Receipt Date: 20240314
  Transmission Date: 20240409
  Serious: Yes (Other)
  Sender: FDA-Public Use
  Company Number: US-PFIZER INC-PV202300092503

PATIENT
  Age: 30 Year
  Sex: Female

DRUGS (2)
  1. OXBRYTA [Suspect]
     Active Substance: VOXELOTOR
     Dosage: 900 MG, 1X/DAY
     Route: 048
     Dates: start: 20230311
  2. OXBRYTA [Suspect]
     Active Substance: VOXELOTOR
     Dosage: 300MG/3 TABLETS ONCE DAILY
     Route: 048

REACTIONS (4)
  - Change in seizure presentation [Unknown]
  - Fatigue [Unknown]
  - Motor dysfunction [Unknown]
  - Off label use [Unknown]

NARRATIVE: CASE EVENT DATE: 20230311
